FAERS Safety Report 7536075-0 (Version None)
Quarter: 2011Q2

REPORT INFORMATION
  Report Type: 
  Country: None (occurrence: None)
  Receive Date: 20110602
  Receipt Date: 20110519
  Transmission Date: 20111010
  Serious: Yes (Life-Threatening)
  Sender: FDA-Public Use
  Company Number: GER/UKI/11/0018216

PATIENT
  Age: 44 Year
  Sex: Female

DRUGS (5)
  1. KEPPRA [Suspect]
     Indication: EPILEPSY
     Dosage: 250 MG, 2 IN 1 D
     Dates: start: 20110101
  2. KEPPRA [Suspect]
     Indication: EPILEPSY
     Dosage: 250 MG, 2 IN 1 D
     Dates: start: 20110209, end: 20110101
  3. KEPPRA [Suspect]
     Indication: EPILEPSY
     Dosage: 250 MG, 2 IN 1 D
     Dates: start: 20110101, end: 20110323
  4. LAMOTRIGINE [Suspect]
     Indication: PRODUCT USED FOR UNKNOWN INDICATION
     Dates: start: 20110101
  5. LAMOTRIGINE [Suspect]
     Indication: PRODUCT USED FOR UNKNOWN INDICATION
     Dates: start: 20100801

REACTIONS (3)
  - MULTIPLE DRUG OVERDOSE [None]
  - DEPRESSED MOOD [None]
  - SUICIDE ATTEMPT [None]
